FAERS Safety Report 11154924 (Version 1)
Quarter: 2015Q2

REPORT INFORMATION
  Report Type: Spontaneous
  Country: None (occurrence: None)
  Receive Date: 20150601
  Receipt Date: 20150601
  Transmission Date: 20150821
  Serious: No
  Sender: FDA-Public Use
  Company Number: None

PATIENT
  Age: 57 Year
  Sex: Female
  Weight: 97.98 kg

DRUGS (15)
  1. LORATADINE. [Concomitant]
     Active Substance: LORATADINE
  2. LISINOPRIL. [Concomitant]
     Active Substance: LISINOPRIL
  3. TYLENOL [Concomitant]
     Active Substance: ACETAMINOPHEN
  4. LANTUS [Concomitant]
     Active Substance: INSULIN GLARGINE
  5. TEARS NATURALE [Concomitant]
  6. ASPIRIN. [Concomitant]
     Active Substance: ASPIRIN
  7. ATORVASTATIN [Suspect]
     Active Substance: ATORVASTATIN
     Indication: DYSLIPIDAEMIA
     Route: 048
     Dates: start: 20121220, end: 20141008
  8. NITROGLYCERIN. [Concomitant]
     Active Substance: NITROGLYCERIN
  9. HYDROCERIN  CREAM [Concomitant]
  10. CLOPIDOGREL [Concomitant]
     Active Substance: CLOPIDOGREL BISULFATE
  11. SERTRALINE [Concomitant]
     Active Substance: SERTRALINE HYDROCHLORIDE
  12. OMEPRAZOLE. [Concomitant]
     Active Substance: OMEPRAZOLE
  13. NOVOLOG [Concomitant]
     Active Substance: INSULIN ASPART
  14. ERGOCALCIFEROL. [Concomitant]
     Active Substance: ERGOCALCIFEROL
  15. ALBUTEROL. [Concomitant]
     Active Substance: ALBUTEROL

REACTIONS (4)
  - Hypoaesthesia [None]
  - Myopathy [None]
  - Muscular weakness [None]
  - Peripheral swelling [None]

NARRATIVE: CASE EVENT DATE: 20141008
